FAERS Safety Report 13660585 (Version 1)
Quarter: 2017Q2

REPORT INFORMATION
  Report Type: Spontaneous
  Country: JP (occurrence: JP)
  Receive Date: 20170616
  Receipt Date: 20170616
  Transmission Date: 20170830
  Serious: Yes (Other)
  Sender: FDA-Public Use
  Company Number: JP-PFIZER INC-2017259625

PATIENT
  Age: 81 Year
  Sex: Female

DRUGS (1)
  1. LYRICA [Suspect]
     Active Substance: PREGABALIN
     Route: 048

REACTIONS (4)
  - Depression [Unknown]
  - Dementia [Unknown]
  - Condition aggravated [Unknown]
  - Dysgeusia [Unknown]
